FAERS Safety Report 5846634-9 (Version None)
Quarter: 2008Q3

REPORT INFORMATION
  Report Type: 
  Country: None (occurrence: None)
  Receive Date: 20080815
  Receipt Date: 20080808
  Transmission Date: 20090109
  Serious: Yes (Other)
  Sender: FDA-Public Use
  Company Number: A0742715A

PATIENT
  Age: 66 Year
  Sex: Male
  Weight: 104 kg

DRUGS (9)
  1. ALKERAN [Suspect]
     Indication: DRUG USE FOR UNKNOWN INDICATION
     Dosage: 181MG PER DAY
     Route: 042
  2. ALLOPURINOL [Concomitant]
     Route: 048
  3. ATENOLOL [Concomitant]
     Route: 048
  4. CALCIUM CARBONATE [Concomitant]
     Route: 048
  5. CIPROFLOXACIN [Concomitant]
     Route: 048
  6. DEXAMETHASONE TAB [Concomitant]
     Route: 048
  7. KYTRIL [Concomitant]
     Route: 048
  8. PIPERACILLIN AND TAZOBACTAM [Concomitant]
     Route: 042
  9. HYDROCORTISONE [Concomitant]
     Route: 042

REACTIONS (4)
  - BLOOD CREATININE INCREASED [None]
  - DYSPNOEA [None]
  - HYPOXIA [None]
  - PYREXIA [None]
